FAERS Safety Report 18096319 (Version 1)
Quarter: 2020Q3

REPORT INFORMATION
  Report Type: Spontaneous
  Country: US (occurrence: US)
  Receive Date: 20200731
  Receipt Date: 20200731
  Transmission Date: 20201103
  Serious: Yes (Other)
  Sender: FDA-Public Use
  Company Number: US-STRIDES ARCOLAB LIMITED-2019SP011230

PATIENT
  Age: 44 Year
  Sex: Female

DRUGS (10)
  1. HYDROXYCHLOROQUINE [Concomitant]
     Active Substance: HYDROXYCHLOROQUINE
     Indication: DERMATOMYOSITIS
     Dosage: UNK
     Route: 065
  2. HYDROXYCHLOROQUINE [Concomitant]
     Active Substance: HYDROXYCHLOROQUINE
     Indication: PULMONARY FIBROSIS
  3. AZATHIOPRINE. [Suspect]
     Active Substance: AZATHIOPRINE
     Indication: DERMATOMYOSITIS
  4. MYCOPHENOLATE MOFETIL. [Suspect]
     Active Substance: MYCOPHENOLATE MOFETIL
     Indication: PULMONARY FIBROSIS
  5. CYCLOPHOSPHAMIDE. [Concomitant]
     Active Substance: CYCLOPHOSPHAMIDE
     Indication: PULMONARY FIBROSIS
  6. CYCLOPHOSPHAMIDE. [Concomitant]
     Active Substance: CYCLOPHOSPHAMIDE
     Indication: DERMATOMYOSITIS
     Dosage: UNK
     Route: 065
  7. PREDNISONE. [Concomitant]
     Active Substance: PREDNISONE
     Indication: PULMONARY FIBROSIS
  8. AZATHIOPRINE. [Suspect]
     Active Substance: AZATHIOPRINE
     Indication: PULMONARY FIBROSIS
     Dosage: UNK
     Route: 065
  9. PREDNISONE. [Concomitant]
     Active Substance: PREDNISONE
     Indication: DERMATOMYOSITIS
     Dosage: UNK; TAPERING DOSE
     Route: 065
  10. MYCOPHENOLATE MOFETIL. [Suspect]
     Active Substance: MYCOPHENOLATE MOFETIL
     Indication: DERMATOMYOSITIS
     Dosage: UNK
     Route: 065

REACTIONS (2)
  - Drug ineffective [Unknown]
  - Off label use [Unknown]
